FAERS Safety Report 24005953 (Version 1)
Quarter: 2024Q2

REPORT INFORMATION
  Report Type: Spontaneous
  Country: CA (occurrence: CA)
  Receive Date: 20240624
  Receipt Date: 20240624
  Transmission Date: 20240716
  Serious: Yes (Other)
  Sender: FDA-Public Use
  Company Number: CA-BAXTER-2024BAX020192

PATIENT
  Age: 35 Year
  Sex: Male

DRUGS (9)
  1. ONDANSETRON [Suspect]
     Active Substance: ONDANSETRON
     Dosage: UNSPECIFIED DOSE AND FREQUENCY, (DOSAGE FORM: NOT SPECIFIED)
     Route: 065
  2. ACETAMINOPHEN [Suspect]
     Active Substance: ACETAMINOPHEN
     Dosage: UNSPECIFIED DOSE AND FREQUENCY, (DOSAGE FORM: NOT SPECIFIED)
     Route: 065
  3. ERYTHROMYCIN [Suspect]
     Active Substance: ERYTHROMYCIN
     Dosage: UNSPECIFIED DOSE AND FREQUENCY, (DOSAGE FORM: NOT SPECIFIED)
     Route: 065
  4. FILGRASTIM [Suspect]
     Active Substance: FILGRASTIM
     Dosage: UNK
     Route: 065
  5. LIDOCAINE [Suspect]
     Active Substance: LIDOCAINE
     Dosage: UNSPECIFIED DOSE AND FREQUENCY, (DOSAGE FORM: NOT SPECIFIED)
     Route: 065
  6. METOCLOPRAMIDE [Suspect]
     Active Substance: METOCLOPRAMIDE
     Dosage: UNSPECIFIED DOSE AND FREQUENCY, (DOSAGE FORM: NOT SPECIFIED)
     Route: 065
  7. OLANZAPINE [Suspect]
     Active Substance: OLANZAPINE
     Dosage: UNSPECIFIED DOSE AND FREQUENCY, (DOSAGE FORM: NOT SPECIFIED)
     Route: 065
  8. POLYETHYLENE GLYCOL [Suspect]
     Active Substance: POLYETHYLENE GLYCOL
     Dosage: UNSPECIFIED DOSE AND FREQUENCY, (DOSAGE FORM: NOT SPECIFIED)
     Route: 065
  9. SENNOSIDES [Suspect]
     Active Substance: SENNOSIDES
     Dosage: UNSPECIFIED DOSE AND FREQUENCY, (DOSAGE FORM: NOT SPECIFIED)
     Route: 065

REACTIONS (1)
  - Febrile neutropenia [Unknown]
